FAERS Safety Report 8172780-3 (Version None)
Quarter: 2012Q1

REPORT INFORMATION
  Report Type: 
  Country: None (occurrence: None)
  Receive Date: 20120229
  Receipt Date: 20120220
  Transmission Date: 20120608
  Serious: Yes (Life-Threatening)
  Sender: FDA-Public Use
  Company Number: FR-NOVOPROD-345506

PATIENT
  Age: 60 Year
  Sex: Male

DRUGS (6)
  1. ACTIQ [Suspect]
     Indication: PAIN
     Dosage: UNK
     Dates: end: 20100330
  2. DURAGESIC-100 [Suspect]
     Indication: PAIN
     Dosage: UNK
     Dates: end: 20100330
  3. LANTUS [Suspect]
     Indication: DIABETES MELLITUS
  4. NOVORAPID [Suspect]
     Indication: DIABETES MELLITUS
     Dosage: UNK
     Route: 058
  5. ASPIRIN [Suspect]
     Indication: PRODUCT USED FOR UNKNOWN INDICATION
     Dosage: 75 MG, QD
     Route: 048
  6. CREON [Suspect]
     Indication: PANCREATITIS
     Dosage: 7500 IU, QD
     Route: 048

REACTIONS (1)
  - COMA [None]
